FAERS Safety Report 4870604-0 (Version None)
Quarter: 2006Q1

REPORT INFORMATION
  Report Type: 
  Country: None (occurrence: None)
  Receive Date: 20060103
  Receipt Date: 20051209
  Transmission Date: 20060701
  Serious: Yes (Death)
  Sender: FDA-Public Use
  Company Number: JP-NOVOPROD-249206

PATIENT
  Age: 80 Year
  Sex: Female

DRUGS (3)
  1. NOVOSEVEN [Suspect]
     Indication: TRAUMATIC HAEMORRHAGE
     Dosage: 12 MG, UNK
     Route: 042
     Dates: start: 20050918, end: 20050918
  2. MANNITOL [Concomitant]
     Dosage: 24 IU, UNK
     Dates: start: 20050917
  3. FRESH FROZEN PLASMA [Concomitant]
     Dosage: 12 IU, UNK
     Dates: start: 20050917

REACTIONS (2)
  - BRAIN DEATH [None]
  - SHOCK [None]
